FAERS Safety Report 18852850 (Version 1)
Quarter: 2021Q1

REPORT INFORMATION
  Report Type: Spontaneous
  Country: US (occurrence: US)
  Receive Date: 20210205
  Receipt Date: 20210205
  Transmission Date: 20210420
  Serious: Yes (Other)
  Sender: FDA-Public Use
  Company Number: None

PATIENT
  Age: 62 Year
  Sex: Female
  Weight: 72 kg

DRUGS (1)
  1. COPAXONE [Suspect]
     Active Substance: GLATIRAMER ACETATE
     Indication: MULTIPLE SCLEROSIS
     Dosage: ?          OTHER FREQUENCY:TIW;?
     Route: 058
     Dates: start: 20200201, end: 20210205

REACTIONS (7)
  - Pyrexia [None]
  - Myalgia [None]
  - Salivary gland enlargement [None]
  - Arthralgia [None]
  - Fatigue [None]
  - Tenosynovitis [None]
  - Dry eye [None]

NARRATIVE: CASE EVENT DATE: 20200201
